FAERS Safety Report 6875040-3 (Version None)
Quarter: 2010Q2

REPORT INFORMATION
  Report Type: 
  Country: None (occurrence: None)
  Receive Date: 20100610
  Receipt Date: 20100409
  Transmission Date: 20101027
  Serious: No
  Sender: FDA-Public Use
  Company Number: 2010SP021157

PATIENT
  Sex: Female

DRUGS (2)
  1. SAPHRIS [Suspect]
     Indication: DRUG USE FOR UNKNOWN INDICATION
  2. SUBOXONE [Concomitant]

REACTIONS (3)
  - EUPHORIC MOOD [None]
  - HEART RATE INCREASED [None]
  - THERAPY RESPONDER [None]
